APPROVED DRUG PRODUCT: GLYCOPYRROLATE
Active Ingredient: GLYCOPYRROLATE
Strength: 0.2MG/ML
Dosage Form/Route: INJECTABLE;INJECTION
Application: A089393 | Product #001
Applicant: HOSPIRA INC
Approved: Jun 15, 1988 | RLD: No | RS: No | Type: DISCN